FAERS Safety Report 18302384 (Version 1)
Quarter: 2020Q3

REPORT INFORMATION
  Report Type: Spontaneous
  Country: FR (occurrence: FR)
  Receive Date: 20200923
  Receipt Date: 20200923
  Transmission Date: 20201103
  Serious: Yes (Other)
  Sender: FDA-Public Use
  Company Number: FR-PFIZER INC-2020325283

PATIENT
  Age: 27 Year
  Sex: Male

DRUGS (1)
  1. PREGABALIN. [Suspect]
     Active Substance: PREGABALIN
     Indication: INTERVERTEBRAL DISC DISORDER
     Dosage: 2100 MG, 1X/DAY
     Route: 048
     Dates: start: 2017, end: 20200629

REACTIONS (2)
  - Overdose [Recovering/Resolving]
  - Drug use disorder [Recovering/Resolving]

NARRATIVE: CASE EVENT DATE: 2017
